FAERS Safety Report 18936857 (Version 2)
Quarter: 2021Q2

REPORT INFORMATION
  Report Type: Spontaneous
  Country: US (occurrence: US)
  Receive Date: 20210225
  Receipt Date: 20210402
  Transmission Date: 20210717
  Serious: Yes (Other)
  Sender: FDA-Public Use
  Company Number: US-ASTRAZENECA-2021A068097

PATIENT
  Age: 22452 Day
  Sex: Female

DRUGS (4)
  1. BREZTRI AEROSPHERE [Suspect]
     Active Substance: BUDESONIDE\FORMOTEROL\GLYCOPYRRONIUM
     Indication: ASTHMA
     Dosage: 160MCG/7.2MCG/4.8MCG, 2 PUFFS TWICE DAILY (2 PUFFS IN THE MORNING/2 PUFFS AT NIGHT)
     Route: 055
  2. SPIRIVA [Concomitant]
     Active Substance: TIOTROPIUM BROMIDE MONOHYDRATE
     Route: 065
  3. DULERA [Concomitant]
     Active Substance: FORMOTEROL FUMARATE DIHYDRATE\MOMETASONE FUROATE
     Route: 065
  4. BREZTRI AEROSPHERE [Suspect]
     Active Substance: BUDESONIDE\FORMOTEROL\GLYCOPYRRONIUM
     Indication: CHRONIC OBSTRUCTIVE PULMONARY DISEASE
     Dosage: 160MCG/7.2MCG/4.8MCG, 2 PUFFS TWICE DAILY (2 PUFFS IN THE MORNING/2 PUFFS AT NIGHT)
     Route: 055

REACTIONS (6)
  - Product dose omission issue [Unknown]
  - Pneumonitis [Unknown]
  - Ill-defined disorder [Unknown]
  - Off label use [Unknown]
  - Intentional device misuse [Unknown]
  - Device malfunction [Unknown]

NARRATIVE: CASE EVENT DATE: 20210318
